FAERS Safety Report 7993921-4 (Version None)
Quarter: 2011Q4

REPORT INFORMATION
  Report Type: 
  Country: None (occurrence: None)
  Receive Date: 20111215
  Receipt Date: 20111125
  Transmission Date: 20120403
  Serious: Yes (Other)
  Sender: FDA-Public Use
  Company Number: JPI-P-018451

PATIENT
  Age: 63 Year
  Sex: Female

DRUGS (4)
  1. CELECOXIB [Concomitant]
  2. BENAZEPRIL HYDROCHLORIDE [Concomitant]
  3. XYREM [Suspect]
     Indication: CATAPLEXY
     Dosage: 6 GM (3 GM,2 IN 1 D),ORAL
     Route: 048
     Dates: start: 20090326
  4. LEVOTHYROXINE SODIUM [Concomitant]

REACTIONS (2)
  - WALDENSTROM'S MACROGLOBULINAEMIA [None]
  - HIP ARTHROPLASTY [None]
